FAERS Safety Report 4428758-6 (Version None)
Quarter: 2004Q3

REPORT INFORMATION
  Report Type: 
  Country: None (occurrence: None)
  Receive Date: 20040818
  Receipt Date: 20040426
  Transmission Date: 20050211
  Serious: Yes (Other)
  Sender: FDA-Public Use
  Company Number: US-BRISTOL-MYERS SQUIBB COMPANY-12574349

PATIENT
  Age: 67 Year
  Sex: Male

DRUGS (5)
  1. TEQUIN [Suspect]
     Route: 042
  2. DURICEF [Suspect]
  3. ANCEF [Suspect]
  4. VANCOMYCIN HCL [Suspect]
     Route: 042
  5. LEVAQUIN [Suspect]

REACTIONS (1)
  - CLOSTRIDIUM COLITIS [None]
